FAERS Safety Report 7251551-6 (Version None)
Quarter: 2011Q1

REPORT INFORMATION
  Report Type: 
  Country: None (occurrence: None)
  Receive Date: 20110128
  Receipt Date: 20110117
  Transmission Date: 20110831
  Serious: Yes (Hospitalization)
  Sender: FDA-Public Use
  Company Number: BE-GENENTECH-307095

PATIENT
  Sex: Male
  Weight: 74 kg

DRUGS (1)
  1. RITUXIMAB [Suspect]
     Indication: NON-HODGKIN'S LYMPHOMA
     Dosage: 836 MG, Q2M
     Route: 042
     Dates: start: 20100222, end: 20100830

REACTIONS (1)
  - HEPATITIS CHOLESTATIC [None]
